FAERS Safety Report 8139506-0 (Version None)
Quarter: 2012Q1

REPORT INFORMATION
  Report Type: 
  Country: None (occurrence: None)
  Receive Date: 20120215
  Receipt Date: 20120207
  Transmission Date: 20120608
  Serious: Yes (Hospitalization, Other)
  Sender: FDA-Public Use
  Company Number: US-ELI_LILLY_AND_COMPANY-US201201007970

PATIENT
  Age: 37 Year
  Sex: Female

DRUGS (1)
  1. HUMALOG [Suspect]
     Dosage: UNK, OTHER
     Route: 058
     Dates: start: 19900101

REACTIONS (8)
  - RENAL FAILURE CHRONIC [None]
  - PANCREAS TRANSPLANT [None]
  - INFECTIOUS PERITONITIS [None]
  - VIITH NERVE PARALYSIS [None]
  - PROCEDURAL COMPLICATION [None]
  - MENINGITIS FUNGAL [None]
  - RENAL CANCER [None]
  - EXOPHTHALMOS [None]
